FAERS Safety Report 9562350 (Version 1)
Quarter: 2013Q3

REPORT INFORMATION
  Report Type: Report from Study
  Country: IT (occurrence: IT)
  Receive Date: 20130927
  Receipt Date: 20130927
  Transmission Date: 20140515
  Serious: Yes (Life-Threatening, Other)
  Sender: FDA-Public Use
  Company Number: IT-MERCK-1309ITA009429

PATIENT
  Sex: 0

DRUGS (3)
  1. TEMOZOLOMIDE [Suspect]
     Indication: GLIOBLASTOMA
     Dosage: 40 MG/M2, PER DAY
     Route: 048
  2. SORAFENIB [Suspect]
     Indication: GLIOBLASTOMA
     Dosage: 800 MG/DAY (TWO TABLETS TWICE DAILY)
     Route: 048
  3. OXCARBAZEPINE [Concomitant]
     Indication: CONVULSION

REACTIONS (1)
  - Necrotising fasciitis [Unknown]
